FAERS Safety Report 5676758-0 (Version None)
Quarter: 2008Q2

REPORT INFORMATION
  Report Type: 
  Country: None (occurrence: None)
  Receive Date: 20080318
  Receipt Date: 20080313
  Transmission Date: 20081010
  Serious: Yes (Death)
  Sender: FDA-Public Use
  Company Number: 18704

PATIENT
  Age: 78 Year
  Sex: Female

DRUGS (2)
  1. VINORELBINE [Suspect]
     Indication: BREAST CANCER
  2. NAVELBINE [Suspect]
     Indication: BREAST CANCER

REACTIONS (1)
  - DEATH [None]
